FAERS Safety Report 10068707 (Version 1)
Quarter: 2014Q2

REPORT INFORMATION
  Report Type: Spontaneous
  Country: FR (occurrence: FR)
  Receive Date: 20140409
  Receipt Date: 20140409
  Transmission Date: 20141212
  Serious: Yes (Other)
  Sender: FDA-Public Use
  Company Number: FR-ASTELLAS-2014EU003856

PATIENT
  Age: 70 Year
  Sex: Male

DRUGS (5)
  1. ADVAGRAF [Suspect]
     Indication: LIVER TRANSPLANT
     Dosage: 2 MG, UID/QD
     Route: 065
  2. VESICARE [Suspect]
     Dosage: UNK
     Route: 065
  3. RAMIPRIL [Concomitant]
     Dosage: UNK
     Route: 065
  4. INEXIUM                            /01479302/ [Concomitant]
     Dosage: UNK
     Route: 065
  5. ALLOPURINOL [Concomitant]
     Dosage: UNK
     Route: 065

REACTIONS (4)
  - Drug dose omission [Unknown]
  - Overdose [Unknown]
  - Colon cancer [Unknown]
  - Hepatic artery thrombosis [Unknown]
